FAERS Safety Report 15035573 (Version 2)
Quarter: 2018Q2

REPORT INFORMATION
  Report Type: Report from Study
  Country: JP (occurrence: JP)
  Receive Date: 20180620
  Receipt Date: 20180627
  Transmission Date: 20180711
  Serious: Yes (Death)
  Sender: FDA-Public Use
  Company Number: JP-ROCHE-2140966

PATIENT
  Age: 54 Year
  Sex: Male
  Weight: 71 kg

DRUGS (2)
  1. RANIBIZUMAB. [Suspect]
     Active Substance: RANIBIZUMAB
     Indication: DIABETIC RETINAL OEDEMA
     Route: 050
     Dates: start: 20180515, end: 20180515
  2. RANIBIZUMAB. [Suspect]
     Active Substance: RANIBIZUMAB
     Indication: VISUAL IMPAIRMENT
     Dosage: RIGTH EYE
     Route: 050
     Dates: start: 20180522, end: 20180522

REACTIONS (1)
  - Neck crushing [Fatal]

NARRATIVE: CASE EVENT DATE: 20180527
